FAERS Safety Report 12456288 (Version 1)
Quarter: 2016Q2

REPORT INFORMATION
  Report Type: Spontaneous
  Country: GB (occurrence: GB)
  Receive Date: 20160610
  Receipt Date: 20160610
  Transmission Date: 20160815
  Serious: Yes (Hospitalization)
  Sender: FDA-Public Use
  Company Number: GB-TEVA-665865ACC

PATIENT
  Age: 72 Year
  Sex: Female

DRUGS (9)
  1. BISOPROLOL [Suspect]
     Active Substance: BISOPROLOL
     Dosage: 1.25 MILLIGRAM DAILY;
     Route: 048
     Dates: start: 20160506, end: 20160520
  2. FERROUS FUMARATE [Concomitant]
     Active Substance: FERROUS FUMARATE
  3. LANSOPRAZOLE. [Concomitant]
     Active Substance: LANSOPRAZOLE
     Dosage: 30 MILLIGRAM DAILY;
  4. METFORMIN [Concomitant]
     Active Substance: METFORMIN HYDROCHLORIDE
     Dosage: 1 GRAM DAILY;
  5. PREDNISOLONE. [Concomitant]
     Active Substance: PREDNISOLONE
     Indication: RASH GENERALISED
     Dosage: 30 MILLIGRAM DAILY;
     Dates: start: 20160522
  6. PERINDOPRIL [Concomitant]
     Active Substance: PERINDOPRIL
     Dosage: 8 MILLIGRAM DAILY;
  7. CETIRIZINE [Concomitant]
     Active Substance: CETIRIZINE HYDROCHLORIDE
     Indication: RASH
  8. FUROSEMIDE. [Concomitant]
     Active Substance: FUROSEMIDE
     Dosage: 40 MILLIGRAM DAILY;
  9. SUNVIT-D3 [Concomitant]

REACTIONS (6)
  - Pallor [Unknown]
  - Cardiomegaly [Unknown]
  - Pruritus [Unknown]
  - Dyspnoea [Recovering/Resolving]
  - Productive cough [Unknown]
  - Rash generalised [Recovering/Resolving]

NARRATIVE: CASE EVENT DATE: 20160506
